FAERS Safety Report 8508878-7 (Version None)
Quarter: 2012Q3

REPORT INFORMATION
  Report Type: 
  Country: None (occurrence: None)
  Receive Date: 20120713
  Receipt Date: 20120702
  Transmission Date: 20120928
  Serious: Yes (Other)
  Sender: FDA-Public Use
  Company Number: US-FRI-1000036814

PATIENT
  Age: 58 Year
  Sex: Male
  Weight: 99.7 kg

DRUGS (2)
  1. VIIBRYD [Suspect]
     Indication: ANXIETY
  2. VIIBRYD [Suspect]

REACTIONS (8)
  - CHROMATOPSIA [None]
  - OFF LABEL USE [None]
  - SENSORY DISTURBANCE [None]
  - MOVEMENT DISORDER [None]
  - FEELING ABNORMAL [None]
  - UNEVALUABLE EVENT [None]
  - TINNITUS [None]
  - FEELING COLD [None]
